FAERS Safety Report 21635963 (Version 2)
Quarter: 2023Q2

REPORT INFORMATION
  Report Type: Spontaneous
  Country: US (occurrence: US)
  Receive Date: 20221123
  Receipt Date: 20230613
  Transmission Date: 20230721
  Serious: No
  Sender: FDA-Public Use
  Company Number: US-GLENMARK PHARMACEUTICALS-2022GMK075710

PATIENT

DRUGS (10)
  1. TACROLIMUS [Suspect]
     Active Substance: TACROLIMUS
     Indication: Eyelid skin dryness
     Dosage: UNK
     Route: 061
  2. TACROLIMUS [Suspect]
     Active Substance: TACROLIMUS
     Indication: Eyelids pruritus
  3. CITRACAL + D3 [Concomitant]
     Indication: Mineral supplementation
     Dosage: 1200 INTERNATIONAL UNIT, BID (FOR ATLEAST 10 YEARS)
     Route: 048
     Dates: start: 2012
  4. MINERALS\VITAMINS [Concomitant]
     Active Substance: MINERALS\VITAMINS
     Indication: Vitamin supplementation
     Dosage: UNK (TAKING FOR A LONG TIME)
     Route: 048
  5. MAXZIDE [Concomitant]
     Active Substance: HYDROCHLOROTHIAZIDE\TRIAMTERENE
     Indication: Hypertension
     Dosage: UNK, QD (TOTAL DAILY DOSE: 37.5 /25 MG) (PROBABLY STARTED LAST SUMMER)
     Route: 048
     Dates: start: 2021
  6. VERAPAMIL [Concomitant]
     Active Substance: VERAPAMIL HYDROCHLORIDE
     Indication: Hypertension
     Dosage: 240 MILLIGRAM, QD (EXTENDED RELEASE) (STARTED TAKING A LONG TIME AGO)
     Route: 048
  7. ATORVASTATIN [Concomitant]
     Active Substance: ATORVASTATIN
     Indication: Blood cholesterol abnormal
     Dosage: 10 MILLIGRAM, QD
     Route: 048
     Dates: start: 2019
  8. TRAZODONE [Concomitant]
     Active Substance: TRAZODONE HYDROCHLORIDE
     Indication: Sleep disorder
     Dosage: 50 MILLIGRAM, QD
     Route: 048
     Dates: start: 2002
  9. PEPCID [Concomitant]
     Active Substance: FAMOTIDINE
     Indication: Gastrooesophageal reflux disease
     Dosage: 40 MILLIGRAM, QD
     Route: 048
     Dates: start: 2007
  10. OMEPRAZOLE [Concomitant]
     Active Substance: OMEPRAZOLE
     Indication: Gastrooesophageal reflux disease
     Dosage: 40 MILLIGRAM, QD
     Route: 048
     Dates: start: 2007

REACTIONS (5)
  - Product use in unapproved indication [Unknown]
  - Expired product administered [Unknown]
  - Product administered at inappropriate site [Unknown]
  - Inappropriate schedule of product administration [Unknown]
  - Product container issue [Unknown]

NARRATIVE: CASE EVENT DATE: 20220101
